FAERS Safety Report 22075201 (Version 3)
Quarter: 2023Q1

REPORT INFORMATION
  Report Type: Spontaneous
  Country: US (occurrence: US)
  Receive Date: 20230308
  Receipt Date: 20230321
  Transmission Date: 20230417
  Serious: Yes (Hospitalization, Other)
  Sender: FDA-Public Use
  Company Number: US-BRISTOL-MYERS SQUIBB COMPANY-2023-033165

PATIENT
  Age: 59 Year
  Sex: Female
  Weight: 136.08 kg

DRUGS (2)
  1. ELIQUIS [Suspect]
     Active Substance: APIXABAN
     Indication: Cerebrovascular accident prophylaxis
     Dates: start: 20201211
  2. DILTIAZEM [Suspect]
     Active Substance: DILTIAZEM
     Indication: Atrial flutter
     Dosage: ER CAPLET
     Dates: start: 20201210

REACTIONS (15)
  - Skin reaction [Not Recovered/Not Resolved]
  - Rash erythematous [Unknown]
  - Dermatitis psoriasiform [Unknown]
  - Hyponatraemia [Unknown]
  - Acute respiratory failure [Unknown]
  - Acute kidney injury [Unknown]
  - Bandaemia [Unknown]
  - Essential hypertension [Unknown]
  - Hyperglycaemia [Unknown]
  - Hypotension [Unknown]
  - Rash [Unknown]
  - Obesity [Unknown]
  - Hyperlipidaemia [Unknown]
  - Pustular psoriasis [Unknown]
  - Severe cutaneous adverse reaction [Unknown]

NARRATIVE: CASE EVENT DATE: 20201201
